FAERS Safety Report 8074698-3 (Version None)
Quarter: 2012Q1

REPORT INFORMATION
  Report Type: 
  Country: None (occurrence: None)
  Receive Date: 20120126
  Receipt Date: 20120120
  Transmission Date: 20120608
  Serious: Yes (Hospitalization)
  Sender: FDA-Public Use
  Company Number: DE-ROCHE-1032618

PATIENT
  Sex: Female

DRUGS (1)
  1. MABTHERA [Suspect]
     Indication: NON-HODGKIN'S LYMPHOMA
     Route: 042

REACTIONS (3)
  - GASTROENTERITIS NOROVIRUS [None]
  - OESOPHAGEAL CANDIDIASIS [None]
  - ENTEROCOLITIS HAEMORRHAGIC [None]
